FAERS Safety Report 7979352-1 (Version None)
Quarter: 2011Q4

REPORT INFORMATION
  Report Type: 
  Country: None (occurrence: None)
  Receive Date: 20111214
  Receipt Date: 20111208
  Transmission Date: 20120403
  Serious: Yes (Hospitalization, Other)
  Sender: FDA-Public Use
  Company Number: US-AMGEN-USASP2011041626

PATIENT
  Age: 85 Year
  Sex: Female
  Weight: 49.887 kg

DRUGS (19)
  1. ARANESP [Suspect]
     Dosage: 60 MUG, QWK
     Route: 058
  2. PROCRIT [Suspect]
     Dosage: 60000 IU, QWK
     Route: 058
  3. INTEGRA [Concomitant]
  4. PROCRIT [Suspect]
     Indication: MYELODYSPLASTIC SYNDROME
     Dosage: 40000 IU, QWK
  5. VITAMIN B6 [Concomitant]
  6. ARANESP [Suspect]
     Dosage: 100 MUG, QWK
     Route: 058
  7. PROCRIT [Suspect]
     Dosage: 50000 IU, QWK
  8. ASPIRIN [Concomitant]
     Indication: CARDIOVASCULAR DISORDER
  9. ARANESP [Suspect]
     Dosage: 40 MUG, QWK
     Route: 058
  10. DANAZOL [Concomitant]
     Dosage: 50 MG, QD
     Route: 048
  11. AVALIDE [Concomitant]
  12. VITAMIN D [Concomitant]
  13. ARANESP [Suspect]
     Indication: RENAL FAILURE
     Dosage: 25 MUG, QWK
     Route: 058
     Dates: start: 20091002, end: 20100105
  14. FERAHEME [Concomitant]
     Indication: IRON DEFICIENCY
     Dosage: 510 MG, UNK
     Route: 042
     Dates: start: 20100701
  15. LIPITOR [Concomitant]
     Indication: HYPERLIPIDAEMIA
  16. LIPITOR [Concomitant]
     Indication: CARDIOVASCULAR DISORDER
  17. FOLIC ACID [Concomitant]
  18. PROCRIT [Suspect]
     Indication: ANAEMIA
     Dosage: 70000 IU, QWK
     Route: 058
     Dates: start: 20100105, end: 20110203
  19. PYRIDOXINE HCL [Concomitant]

REACTIONS (9)
  - THERAPEUTIC RESPONSE DECREASED [None]
  - TRANSFUSION REACTION [None]
  - FATIGUE [None]
  - ANTI-ERYTHROPOIETIN ANTIBODY POSITIVE [None]
  - WEIGHT DECREASED [None]
  - APLASIA PURE RED CELL [None]
  - DRUG ERUPTION [None]
  - EAR PAIN [None]
  - AURICULAR SWELLING [None]
